FAERS Safety Report 11864002 (Version 1)
Quarter: 2015Q4

REPORT INFORMATION
  Report Type: Spontaneous
  Country: GB (occurrence: GB)
  Receive Date: 20151223
  Receipt Date: 20151223
  Transmission Date: 20160305
  Serious: Yes (Other)
  Sender: FDA-Public Use
  Company Number: GB-GLAXOSMITHKLINE-GB2015179084

PATIENT
  Age: 71 Year
  Sex: Female
  Weight: 84.36 kg

DRUGS (6)
  1. BISOPROLOL [Concomitant]
     Active Substance: BISOPROLOL
  2. ANORO ELLIPTA [Suspect]
     Active Substance: UMECLIDINIUM BROMIDE\VILANTEROL TRIFENATATE
     Indication: CHRONIC OBSTRUCTIVE PULMONARY DISEASE
     Dosage: 1 DF, QD
     Route: 055
     Dates: start: 20151119, end: 20151211
  3. ATORVASTATIN [Concomitant]
     Active Substance: ATORVASTATIN
  4. ADENURIC [Concomitant]
     Active Substance: FEBUXOSTAT
  5. CANDESARTAN [Concomitant]
     Active Substance: CANDESARTAN
  6. PREDNISOLONE. [Concomitant]
     Active Substance: PREDNISOLONE

REACTIONS (1)
  - Migraine with aura [Not Recovered/Not Resolved]

NARRATIVE: CASE EVENT DATE: 20151128
